FAERS Safety Report 16050432 (Version 1)
Quarter: 2019Q1

REPORT INFORMATION
  Report Type: Spontaneous
  Country: US (occurrence: US)
  Receive Date: 20190308
  Receipt Date: 20190308
  Transmission Date: 20190418
  Serious: Yes (Other)
  Sender: FDA-Public Use
  Company Number: US-LUPIN PHARMACEUTICALS INC.-2019-01307

PATIENT

DRUGS (1)
  1. DICLOFENAC SODIUM. [Suspect]
     Active Substance: DICLOFENAC SODIUM
     Indication: PRODUCT USED FOR UNKNOWN INDICATION
     Dosage: UNK
     Route: 065

REACTIONS (12)
  - Febrile neutropenia [Unknown]
  - Pulmonary mass [Unknown]
  - Invasive ductal breast carcinoma [Unknown]
  - Spinal column stenosis [Unknown]
  - Dyspnoea [Unknown]
  - Progesterone receptor assay positive [Unknown]
  - Neuropathy peripheral [Unknown]
  - Hyperthermia malignant [Unknown]
  - Lymphadenopathy [Unknown]
  - Human epidermal growth factor receptor negative [Unknown]
  - Oestrogen receptor assay positive [Unknown]
  - Hepatic lesion [Unknown]
